FAERS Safety Report 14386743 (Version 2)
Quarter: 2018Q3

REPORT INFORMATION
  Report Type: Spontaneous
  Country: US (occurrence: US)
  Receive Date: 20180115
  Receipt Date: 20180723
  Transmission Date: 20181010
  Serious: Yes (Other)
  Sender: FDA-Public Use
  Company Number: US-SA-2017SA114310

PATIENT
  Age: 69 Year
  Sex: Female
  Weight: 78 kg

DRUGS (11)
  1. NEOSAR [Concomitant]
     Active Substance: CYCLOPHOSPHAMIDE
  2. ZOFRAN [ONDANSETRON] [Concomitant]
  3. LISINOPRIL. [Concomitant]
     Active Substance: LISINOPRIL
  4. TAXOTERE [Suspect]
     Active Substance: DOCETAXEL
     Indication: BREAST CANCER FEMALE
     Dosage: 147 MG,Q3W
     Route: 042
     Dates: start: 20100615, end: 20100615
  5. TAXOTERE [Suspect]
     Active Substance: DOCETAXEL
     Dosage: 147 MG,Q3W
     Route: 042
     Dates: start: 20100831, end: 20100831
  6. VICODIN [Concomitant]
     Active Substance: ACETAMINOPHEN\HYDROCODONE BITARTRATE
  7. CYTOXAN [Concomitant]
     Active Substance: CYCLOPHOSPHAMIDE
  8. LASIX [Concomitant]
     Active Substance: FUROSEMIDE
  9. EFFEXOR [Concomitant]
     Active Substance: VENLAFAXINE HYDROCHLORIDE
  10. NEULASTA [Concomitant]
     Active Substance: PEGFILGRASTIM
  11. ASPIRINE [Concomitant]
     Active Substance: ASPIRIN

REACTIONS (1)
  - Alopecia [Recovering/Resolving]

NARRATIVE: CASE EVENT DATE: 201006
